FAERS Safety Report 5938242-6 (Version None)
Quarter: 2008Q4

REPORT INFORMATION
  Report Type: 
  Country: None (occurrence: None)
  Receive Date: 20081031
  Receipt Date: 20081021
  Transmission Date: 20090506
  Serious: Yes (Other)
  Sender: FDA-Public Use
  Company Number: US-PFIZER INC-2008089858

PATIENT
  Sex: Female
  Weight: 39.545 kg

DRUGS (2)
  1. CHANTIX [Suspect]
     Indication: SMOKING CESSATION THERAPY
     Dates: start: 20080101, end: 20081008
  2. ATENOLOL [Concomitant]

REACTIONS (2)
  - DELUSIONAL PERCEPTION [None]
  - MEMORY IMPAIRMENT [None]
